FAERS Safety Report 21842919 (Version 1)
Quarter: 2023Q1

REPORT INFORMATION
  Report Type: Spontaneous
  Country: US (occurrence: US)
  Receive Date: 20230110
  Receipt Date: 20230110
  Transmission Date: 20230418
  Serious: No
  Sender: FDA-Public Use
  Company Number: US-OCULAR THERAPEUTIX-2022OCX00002

PATIENT
  Sex: Female

DRUGS (2)
  1. DEXTENZA [Suspect]
     Active Substance: DEXAMETHASONE
     Indication: Cataract operation
     Dosage: INSERTED INTO EYE 1
     Dates: start: 20211101
  2. DEXTENZA [Suspect]
     Active Substance: DEXAMETHASONE
     Dosage: INSERTED INTO EYE 2
     Dates: start: 20211115

REACTIONS (2)
  - Lacrimation increased [Not Recovered/Not Resolved]
  - Product solubility abnormal [Not Recovered/Not Resolved]
